FAERS Safety Report 7763341-6 (Version None)
Quarter: 2011Q3

REPORT INFORMATION
  Report Type: 
  Country: None (occurrence: None)
  Receive Date: 20110920
  Receipt Date: 20110531
  Transmission Date: 20111222
  Serious: No
  Sender: FDA-Public Use
  Company Number: US-BAUSCH-2011BL003612

PATIENT
  Age: 45 Year
  Sex: Male

DRUGS (9)
  1. BESIVANCE [Suspect]
     Indication: OFF LABEL USE
     Route: 047
     Dates: start: 20110527, end: 20110531
  2. SIMVASTATIN [Concomitant]
  3. PREVACID [Concomitant]
  4. BESIVANCE [Suspect]
     Indication: CORNEAL ABRASION
     Route: 047
     Dates: start: 20110527, end: 20110531
  5. BROMDAY [Concomitant]
     Indication: CORNEAL ABRASION
     Route: 047
     Dates: start: 20110527, end: 20110531
  6. CARBATROL [Concomitant]
  7. METOPROLOL TARTRATE [Concomitant]
  8. TYLENOL W/ CODEINE NO. 3 [Concomitant]
  9. LAMICTAL [Concomitant]

REACTIONS (2)
  - KERATITIS BACTERIAL [None]
  - ULCERATIVE KERATITIS [None]
